FAERS Safety Report 6411136-8 (Version None)
Quarter: 2009Q4

REPORT INFORMATION
  Report Type: 
  Country: None (occurrence: None)
  Receive Date: 20091022
  Receipt Date: 20091015
  Transmission Date: 20100525
  Serious: Yes (Death)
  Sender: FDA-Public Use
  Company Number: DK-PFIZER INC-2009253446

PATIENT
  Age: 77 Year

DRUGS (1)
  1. AMLODIPINE BESILATE [Suspect]
     Dosage: 5 MG, 1X/DAY
     Dates: start: 20060530

REACTIONS (6)
  - BRAIN INJURY [None]
  - CEREBRAL HAEMORRHAGE [None]
  - DRUG LEVEL INCREASED [None]
  - MULTIPLE INJURIES [None]
  - PULMONARY HAEMORRHAGE [None]
  - ROAD TRAFFIC ACCIDENT [None]
